FAERS Safety Report 7074678-0 (Version None)
Quarter: 2010Q4

REPORT INFORMATION
  Report Type: 
  Country: None (occurrence: None)
  Receive Date: 20101029
  Receipt Date: 20101021
  Transmission Date: 20110411
  Serious: Yes (Other)
  Sender: FDA-Public Use
  Company Number: B0681658A

PATIENT
  Age: 28 Year
  Sex: Male

DRUGS (1)
  1. HEPTODIN [Suspect]
     Dosage: .1G PER DAY
     Route: 048
     Dates: start: 20050101

REACTIONS (3)
  - HEPATITIS B [None]
  - LIVER FUNCTION TEST ABNORMAL [None]
  - THERAPEUTIC RESPONSE UNEXPECTED [None]
